FAERS Safety Report 6095602-3 (Version None)
Quarter: 2009Q1

REPORT INFORMATION
  Report Type: 
  Country: None (occurrence: None)
  Receive Date: 20090227
  Receipt Date: 20080505
  Transmission Date: 20090719
  Serious: No
  Sender: FDA-Public Use
  Company Number: A0726174A

PATIENT
  Age: 43 Year
  Sex: Female

DRUGS (1)
  1. LAMICTAL [Suspect]
     Dosage: 40MG PER DAY
     Route: 048
     Dates: start: 20070501

REACTIONS (4)
  - AMNESIA [None]
  - METRORRHAGIA [None]
  - MOOD ALTERED [None]
  - SPEECH DISORDER [None]
